FAERS Safety Report 8771381 (Version 1)
Quarter: 2012Q4

REPORT INFORMATION
  Report Type: 
  Country: US (occurrence: US)
  Receive Date: 20120906
  Receipt Date: 20120906
  Transmission Date: 20130627
  Serious: Yes (Other)
  Sender: FDA-Public Use
  Company Number: US-GLAXOSMITHKLINE-A0991647A

PATIENT
  Age: 14 Year
  Sex: Male

DRUGS (1)
  1. LAMICTAL [Suspect]
     Indication: PRODUCT USED FOR UNKNOWN INDICATION
     Dosage: 75MG per day
     Route: 065

REACTIONS (4)
  - Suicidal ideation [Unknown]
  - Mood swings [Unknown]
  - Depression [Unknown]
  - Anger [Unknown]
